FAERS Safety Report 18178747 (Version 1)
Quarter: 2020Q3

REPORT INFORMATION
  Report Type: Spontaneous
  Country: KR (occurrence: KR)
  Receive Date: 20200821
  Receipt Date: 20200821
  Transmission Date: 20201103
  Serious: Yes (Other)
  Sender: FDA-Public Use
  Company Number: KR-LUPIN PHARMACEUTICALS INC.-2020-04990

PATIENT

DRUGS (2)
  1. FENTANYL. [Suspect]
     Active Substance: FENTANYL
     Indication: LABOUR PAIN
     Dosage: UNK
     Route: 064
  2. TRAMADOL. [Suspect]
     Active Substance: TRAMADOL
     Indication: LABOUR PAIN
     Dosage: UNK
     Route: 064

REACTIONS (4)
  - Hypoxic-ischaemic encephalopathy [Unknown]
  - Hypoxia [Unknown]
  - Product prescribing issue [Unknown]
  - Foetal exposure during pregnancy [Unknown]
